FAERS Safety Report 15347983 (Version 2)
Quarter: 2018Q4

REPORT INFORMATION
  Report Type: Spontaneous
  Country: US (occurrence: US)
  Receive Date: 20180904
  Receipt Date: 20181226
  Transmission Date: 20190204
  Serious: No
  Sender: FDA-Public Use
  Company Number: US-SUNOVION-2018SUN003331

PATIENT

DRUGS (2)
  1. LATUDA [Suspect]
     Active Substance: LURASIDONE HYDROCHLORIDE
     Route: 048
  2. ANTIDEPRESSANTS [Concomitant]
     Active Substance: UNSPECIFIED INGREDIENT
     Dosage: UNK

REACTIONS (5)
  - Therapy cessation [Unknown]
  - Hallucination, auditory [Unknown]
  - Euphoric mood [Unknown]
  - Dyskinesia [Unknown]
  - Nightmare [Unknown]
